FAERS Safety Report 12839671 (Version 1)
Quarter: 2016Q4

REPORT INFORMATION
  Report Type: Spontaneous
  Country: US (occurrence: US)
  Receive Date: 20161011
  Receipt Date: 20161011
  Transmission Date: 20170207
  Serious: Yes (Life-Threatening)
  Sender: FDA-Public Use
  Company Number: None

PATIENT
  Age: 85 Year
  Sex: Male
  Weight: 92.4 kg

DRUGS (2)
  1. VORAPAXAR [Suspect]
     Active Substance: VORAPAXAR
     Indication: CORONARY ARTERY DISEASE
     Route: 048
  2. ALTEPLASE [Suspect]
     Active Substance: ALTEPLASE
     Dosage: ?          OTHER FREQUENCY:INFUSION;?
     Route: 041

REACTIONS (5)
  - Mental status changes [None]
  - Basal ganglia haemorrhage [None]
  - Cerebral haemorrhage [None]
  - Cerebral artery occlusion [None]
  - Hypotension [None]

NARRATIVE: CASE EVENT DATE: 20160914
